FAERS Safety Report 13772419 (Version 1)
Quarter: 2017Q3

REPORT INFORMATION
  Report Type: Spontaneous
  Country: NO (occurrence: NO)
  Receive Date: 20170720
  Receipt Date: 20170720
  Transmission Date: 20171127
  Serious: Yes (Hospitalization)
  Sender: FDA-Public Use
  Company Number: NO-NAPPMUNDI-GBR-2017-0046874

PATIENT
  Sex: Female

DRUGS (1)
  1. TARGINIQ ER [Suspect]
     Active Substance: NALOXONE HYDROCHLORIDE\OXYCODONE HYDROCHLORIDE
     Indication: PAIN
     Dosage: 1 TABLET, QID [10/5MG STRENGTH]
     Route: 048

REACTIONS (4)
  - Diarrhoea [Unknown]
  - Medication residue present [Unknown]
  - Constipation [Unknown]
  - Drug ineffective [Unknown]
